FAERS Safety Report 8674970 (Version 2)
Quarter: 2012Q4

REPORT INFORMATION
  Report Type: 
  Country: US (occurrence: US)
  Receive Date: 20120720
  Receipt Date: 20120830
  Transmission Date: 20130627
  Serious: Yes (Other)
  Sender: FDA-Public Use
  Company Number: US-JNJFOC-20120705796

PATIENT
  Age: 62 Year
  Sex: Female
  Weight: 62.6 kg

DRUGS (14)
  1. STELARA [Suspect]
     Indication: PSORIASIS
     Dosage: for a year; received approximately 3 injections
     Route: 058
     Dates: start: 20110817, end: 20120530
  2. ESTROGEN/PROGESTERONE [Concomitant]
     Route: 065
  3. BUPROPION HCL [Concomitant]
     Route: 065
  4. CALCIUM [Concomitant]
     Route: 065
  5. UNKNOWN MEDICATION [Concomitant]
     Dosage: 9 mcg/38 mcg
     Route: 065
  6. DHEA [Concomitant]
     Route: 065
  7. FISH OIL [Concomitant]
     Route: 065
  8. FLUOCINONIDE [Concomitant]
     Route: 065
  9. MULTIVITAMINS [Concomitant]
     Route: 065
  10. TACLONEX [Concomitant]
     Route: 065
  11. VIT D [Concomitant]
     Route: 065
  12. SERTRALINE HYDROCHLORIDE [Concomitant]
     Route: 065
  13. WELLBUTRIN XL [Concomitant]
     Route: 065
  14. TESTOSTERONE [Concomitant]
     Route: 065

REACTIONS (1)
  - Malignant melanoma [Recovering/Resolving]
